FAERS Safety Report 23064447 (Version 1)
Quarter: 2023Q4

REPORT INFORMATION
  Report Type: Spontaneous
  Country: US (occurrence: None)
  Receive Date: 20231013
  Receipt Date: 20231013
  Transmission Date: 20240110
  Serious: Yes (Hospitalization)
  Sender: FDA-Public Use
  Company Number: None

PATIENT
  Age: 79 Year
  Sex: Male
  Weight: 91.6 kg

DRUGS (1)
  1. FUROSEMIDE [Suspect]
     Active Substance: FUROSEMIDE
     Dates: start: 20071231, end: 20220913

REACTIONS (4)
  - Syncope [None]
  - Ventricular tachycardia [None]
  - Orthostatic hypotension [None]
  - Blood pressure increased [None]

NARRATIVE: CASE EVENT DATE: 20220912
